FAERS Safety Report 6505254-3 (Version None)
Quarter: 2009Q4

REPORT INFORMATION
  Report Type: 
  Country: None (occurrence: None)
  Receive Date: 20091218
  Receipt Date: 20091209
  Transmission Date: 20100525
  Serious: Yes (Other)
  Sender: FDA-Public Use
  Company Number: US-AMGEN-QUU375141

PATIENT
  Sex: Female
  Weight: 70.8 kg

DRUGS (4)
  1. NEUPOGEN [Suspect]
     Indication: BLOOD STEM CELL HARVEST
     Dates: start: 20090601, end: 20090601
  2. VITAMIN D [Concomitant]
  3. FISH OIL [Concomitant]
  4. MULTI-VITAMINS [Concomitant]

REACTIONS (1)
  - DYSFUNCTIONAL UTERINE BLEEDING [None]
